FAERS Safety Report 4975246-4 (Version None)
Quarter: 2006Q2

REPORT INFORMATION
  Report Type: 
  Country: None (occurrence: None)
  Receive Date: 20060411
  Receipt Date: 20060330
  Transmission Date: 20061013
  Serious: Yes (Other)
  Sender: FDA-Public Use
  Company Number: 223624

PATIENT
  Age: 74 Year
  Sex: Male

DRUGS (5)
  1. RITUXIMAB (RITUXIMAB) CONC FOR SOLUTION FOR INFUSION [Suspect]
     Indication: NON-HODGKIN'S LYMPHOMA
     Dosage: 646 MG, 1/WEEK, INTRAVENOUS
     Route: 042
     Dates: start: 20060310, end: 20060324
  2. KEYHOLE LIMPET HEMOCYANIN [Concomitant]
  3. TETANUS TOXOID                   (TETANUS TOXOID) [Concomitant]
  4. EPROSARTAN MESYLATE              (EPROSARTAN MESYLATE) [Concomitant]
  5. METOPROLOL TARTRATE [Concomitant]

REACTIONS (4)
  - CEREBRAL ISCHAEMIA [None]
  - DYSARTHRIA [None]
  - FACIAL PARESIS [None]
  - HEMIPLEGIA [None]
